FAERS Safety Report 23495172 (Version 2)
Quarter: 2024Q1

REPORT INFORMATION
  Report Type: Report from Study
  Country: TW (occurrence: None)
  Receive Date: 20240207
  Receipt Date: 20240228
  Transmission Date: 20240409
  Serious: Yes (Other)
  Sender: FDA-Public Use
  Company Number: 2024A026679

PATIENT
  Age: 73 Year
  Sex: Female

DRUGS (3)
  1. IMFINZI [Suspect]
     Active Substance: DURVALUMAB
     Indication: Bile duct cancer
     Route: 041
     Dates: start: 20230809, end: 20231128
  2. GEMCITABINE [Concomitant]
     Active Substance: GEMCITABINE
     Dates: start: 20230808
  3. CISPLATIN [Concomitant]
     Active Substance: CISPLATIN
     Dates: start: 20230808

REACTIONS (3)
  - Mycobacterial infection [Recovered/Resolved]
  - Malignant neoplasm progression [Unknown]
  - Dyspnoea [Unknown]

NARRATIVE: CASE EVENT DATE: 20230101
